FAERS Safety Report 10844382 (Version 1)
Quarter: 2015Q1

REPORT INFORMATION
  Report Type: Spontaneous
  Country: FR (occurrence: FR)
  Receive Date: 20150220
  Receipt Date: 20150220
  Transmission Date: 20150721
  Serious: Yes (Life-Threatening)
  Sender: FDA-Public Use
  Company Number: FR-009507513-1502FRA008875

PATIENT
  Age: 71 Year
  Sex: Male

DRUGS (11)
  1. BRICANYL [Suspect]
     Active Substance: TERBUTALINE SULFATE
     Dosage: UNK
     Route: 045
     Dates: start: 20141229
  2. LOXEN [Suspect]
     Active Substance: NICARDIPINE HYDROCHLORIDE
     Dosage: 50 MG, QD
     Route: 048
     Dates: start: 20141229
  3. AERIUS [Suspect]
     Active Substance: DESLORATADINE
     Dosage: UNK
     Route: 048
  4. ZOPHREN (ONDANSETRON HYDROCHLORIDE) [Suspect]
     Active Substance: ONDANSETRON HYDROCHLORIDE
     Dosage: UNK
     Dates: start: 20141229
  5. ATROVENT [Suspect]
     Active Substance: IPRATROPIUM BROMIDE
     Dosage: UNK
     Route: 045
     Dates: start: 20141229
  6. CALCIPARINE [Suspect]
     Active Substance: HEPARIN CALCIUM
     Dosage: 1 INJECTION, BID
     Route: 058
     Dates: start: 20141229
  7. ABRAXANE [Suspect]
     Active Substance: PACLITAXEL
     Indication: BENIGN PANCREATIC NEOPLASM
     Dosage: UNK
     Dates: start: 20140214, end: 20140528
  8. GEMCITABINE [Suspect]
     Active Substance: GEMCITABINE\GEMCITABINE HYDROCHLORIDE
     Indication: BENIGN PANCREATIC NEOPLASM
     Dosage: 1000 MG/M3, UNK
     Route: 042
     Dates: start: 20140214, end: 20141121
  9. LASILIX [Suspect]
     Active Substance: FUROSEMIDE
     Dosage: 250 MG, QD
     Route: 048
     Dates: start: 20141024
  10. MIDAZOLAM [Suspect]
     Active Substance: MIDAZOLAM\MIDAZOLAM HYDROCHLORIDE
     Dosage: 2.5 MG, QD
     Route: 042
     Dates: start: 20141229
  11. EUPANTOL [Suspect]
     Active Substance: PANTOPRAZOLE SODIUM
     Dosage: 20 MG, QD
     Route: 048
     Dates: start: 20141229

REACTIONS (1)
  - Renal failure [Recovering/Resolving]

NARRATIVE: CASE EVENT DATE: 201410
